FAERS Safety Report 16507074 (Version 1)
Quarter: 2019Q3

REPORT INFORMATION
  Report Type: Spontaneous
  Country: US (occurrence: US)
  Receive Date: 20190701
  Receipt Date: 20190701
  Transmission Date: 20191004
  Serious: Yes (Hospitalization, Other)
  Sender: FDA-Public Use
  Company Number: US-MALLINCKRODT-T201903667

PATIENT
  Age: 79 Year
  Sex: Female
  Weight: 54 kg

DRUGS (3)
  1. H.P. ACTHAR [Suspect]
     Active Substance: CORTICOTROPIN
     Dosage: 80 UNITS TWICE WEEKLY
     Route: 058
     Dates: start: 20181107, end: 2019
  2. PREDNISONE. [Concomitant]
     Active Substance: PREDNISONE
     Indication: PRODUCT USED FOR UNKNOWN INDICATION
     Dosage: UNK
     Route: 065
  3. H.P. ACTHAR [Suspect]
     Active Substance: CORTICOTROPIN
     Indication: RHEUMATOID ARTHRITIS
     Dosage: 80 UNITS, ONCE A WEEK
     Route: 058
     Dates: start: 201810, end: 2018

REACTIONS (9)
  - Kyphosis [Unknown]
  - Blood glucose increased [Unknown]
  - Sepsis [Unknown]
  - Hypertension [Unknown]
  - Crying [Unknown]
  - Deep vein thrombosis [Unknown]
  - Peripheral swelling [Unknown]
  - Cellulitis [Unknown]
  - Abdominal distension [Unknown]

NARRATIVE: CASE EVENT DATE: 201906
